FAERS Safety Report 20939251 (Version 1)
Quarter: 2022Q2

REPORT INFORMATION
  Report Type: Report from Study
  Country: CN (occurrence: CN)
  Receive Date: 20220609
  Receipt Date: 20220609
  Transmission Date: 20220721
  Serious: Yes (Death)
  Sender: FDA-Public Use
  Company Number: CN-TEVA-2022-CN-2043182

PATIENT

DRUGS (1)
  1. BENDAMUSTINE [Suspect]
     Active Substance: BENDAMUSTINE
     Indication: Plasma cell myeloma refractory
     Route: 065

REACTIONS (1)
  - Gastrointestinal infection [Fatal]
